FAERS Safety Report 10446503 (Version 1)
Quarter: 2014Q3

REPORT INFORMATION
  Report Type: Spontaneous
  Country: FR (occurrence: FR)
  Receive Date: 20140911
  Receipt Date: 20140911
  Transmission Date: 20150326
  Serious: Yes (Hospitalization)
  Sender: FDA-Public Use
  Company Number: FR-ASTRAZENECA-2014SE66880

PATIENT
  Age: 14641 Day
  Sex: Female

DRUGS (7)
  1. LYRICA [Suspect]
     Active Substance: PREGABALIN
     Route: 048
     Dates: start: 20140729
  2. TRAMADOL DCI PHARMA [Suspect]
     Active Substance: TRAMADOL
     Route: 048
     Dates: start: 20140729
  3. TANGANIL [Concomitant]
     Active Substance: ACETYLLEUCINE
  4. LECTIL [Suspect]
     Active Substance: BETAHISTINE HYDROCHLORIDE
     Route: 048
     Dates: start: 20140729
  5. BIPROFENID [Suspect]
     Active Substance: KETOPROFEN
     Dosage: SR
     Route: 048
     Dates: start: 20140729
  6. DOLIPRANE [Concomitant]
     Active Substance: ACETAMINOPHEN
  7. INEXIUM [Suspect]
     Active Substance: ESOMEPRAZOLE
     Route: 048
     Dates: start: 20140729

REACTIONS (3)
  - Sense of oppression [None]
  - Sensorimotor disorder [Unknown]
  - Chest pain [None]

NARRATIVE: CASE EVENT DATE: 20140802
